FAERS Safety Report 5223571-4 (Version None)
Quarter: 2007Q1

REPORT INFORMATION
  Report Type: 
  Country: None (occurrence: None)
  Receive Date: 20070125
  Receipt Date: 20070112
  Transmission Date: 20070707
  Serious: Yes (Hospitalization)
  Sender: FDA-Public Use
  Company Number: 2007PV028344

PATIENT
  Age: 59 Year
  Sex: Male
  Weight: 260.8183 kg

DRUGS (4)
  1. BYETTA [Suspect]
     Indication: DIABETES MELLITUS NON-INSULIN-DEPENDENT
     Dosage: SEE IMAGE
     Route: 058
     Dates: start: 20060501, end: 20060601
  2. BYETTA [Suspect]
     Indication: DIABETES MELLITUS NON-INSULIN-DEPENDENT
     Dosage: SEE IMAGE
     Route: 058
     Dates: start: 20060601
  3. ACTOS [Concomitant]
  4. AMARYL [Concomitant]

REACTIONS (4)
  - ANKLE FRACTURE [None]
  - BLOOD GLUCOSE DECREASED [None]
  - FALL [None]
  - FEELING ABNORMAL [None]
